FAERS Safety Report 13679458 (Version 1)
Quarter: 2017Q2

REPORT INFORMATION
  Report Type: Spontaneous
  Country: TH (occurrence: TH)
  Receive Date: 20170622
  Receipt Date: 20170622
  Transmission Date: 20170830
  Serious: Yes (Hospitalization)
  Sender: FDA-Public Use
  Company Number: TH-ABBVIE-17P-155-2014841-00

PATIENT
  Age: 38 Year
  Sex: Female

DRUGS (1)
  1. ALUVIA [Suspect]
     Active Substance: LOPINAVIR\RITONAVIR
     Indication: HIV INFECTION
     Route: 048
     Dates: start: 20160309, end: 20160317

REACTIONS (1)
  - Ergot poisoning [Recovered/Resolved]

NARRATIVE: CASE EVENT DATE: 20160317
